FAERS Safety Report 10067237 (Version 1)
Quarter: 2014Q2

REPORT INFORMATION
  Report Type: Spontaneous
  Country: US (occurrence: US)
  Receive Date: 20140409
  Receipt Date: 20140409
  Transmission Date: 20141212
  Serious: No
  Sender: FDA-Public Use
  Company Number: US-009507513-1404USA004645

PATIENT
  Sex: 0

DRUGS (1)
  1. WIGRETTES [Suspect]

REACTIONS (2)
  - Vasospasm [Unknown]
  - Accidental exposure to product [Unknown]
